FAERS Safety Report 9479133 (Version 2)
Quarter: 2013Q3

REPORT INFORMATION
  Report Type: Report from Study
  Country: CA (occurrence: CA)
  Receive Date: 20130827
  Receipt Date: 20130827
  Transmission Date: 20140515
  Serious: Yes (Hospitalization)
  Sender: FDA-Public Use
  Company Number: CA-BRISTOL-MYERS SQUIBB COMPANY-15011661

PATIENT
  Age: 88 Year
  Sex: Male

DRUGS (2)
  1. APIXABAN [Suspect]
     Indication: EMBOLISM
     Route: 048
     Dates: start: 20100302
  2. PLACEBO [Suspect]
     Indication: EMBOLISM
     Dosage: PO WITH APIXABAN AND WARFARIN; SC WITH ENOXAPARIN
     Dates: start: 20100302

REACTIONS (1)
  - Lower gastrointestinal haemorrhage [Recovered/Resolved]
